FAERS Safety Report 9302894 (Version 1)
Quarter: 2013Q2

REPORT INFORMATION
  Report Type: Spontaneous
  Country: US (occurrence: None)
  Receive Date: 20130517
  Receipt Date: 20130517
  Transmission Date: 20140414
  Serious: Yes (Hospitalization)
  Sender: FDA-Public Use
  Company Number: COM-001250

PATIENT
  Age: 60 Year
  Sex: Male
  Weight: 71.67 kg

DRUGS (1)
  1. DIPHENHYDRAMINE HCL [Suspect]
     Indication: INSOMNIA
     Dosage: 1 SOFTGEL, DAILY, ORAL
     Route: 048
     Dates: start: 20130409, end: 20130411

REACTIONS (2)
  - Urinary retention [None]
  - Urinary retention [None]
